FAERS Safety Report 20047676 (Version 7)
Quarter: 2022Q1

REPORT INFORMATION
  Report Type: Spontaneous
  Country: PT (occurrence: PT)
  Receive Date: 20211109
  Receipt Date: 20220308
  Transmission Date: 20220424
  Serious: Yes (Life-Threatening, Hospitalization, Disabling, Other)
  Sender: FDA-Public Use
  Company Number: PT-AUROBINDO-AUR-APL-2021-045957

PATIENT
  Age: 84 Year
  Sex: Male

DRUGS (4)
  1. AMOXICILLIN\CLAVULANIC ACID [Suspect]
     Active Substance: AMOXICILLIN\CLAVULANIC ACID
     Indication: Ophthalmic herpes zoster
     Dosage: 1.2 GRAM, TWO TIMES A DAY
     Route: 048
  2. AMOXICILLIN\CLAVULANIC ACID [Suspect]
     Active Substance: AMOXICILLIN\CLAVULANIC ACID
     Indication: Superinfection bacterial
  3. ACYCLOVIR [Concomitant]
     Active Substance: ACYCLOVIR
     Indication: Superinfection bacterial
     Dosage: 850 MILLIGRAM, 3 TIMES A DAY
     Route: 065
  4. ACYCLOVIR [Concomitant]
     Active Substance: ACYCLOVIR
     Indication: Ophthalmic herpes zoster

REACTIONS (5)
  - Autoimmune haemolytic anaemia [Recovered/Resolved]
  - Normochromic normocytic anaemia [Unknown]
  - Pallor [Unknown]
  - Product use in unapproved indication [Unknown]
  - Off label use [Recovered/Resolved]
